FAERS Safety Report 12368969 (Version 1)
Quarter: 2016Q2

REPORT INFORMATION
  Report Type: Spontaneous
  Country: GR (occurrence: GR)
  Receive Date: 20160513
  Receipt Date: 20160513
  Transmission Date: 20160815
  Serious: Yes (Life-Threatening, Other)
  Sender: FDA-Public Use
  Company Number: GR-PFIZER INC-2016253358

PATIENT
  Age: 26 Year
  Sex: Female

DRUGS (13)
  1. DAPTOMYCIN. [Concomitant]
     Active Substance: DAPTOMYCIN
     Dosage: UNK
  2. AMPHOTERICIN B. [Concomitant]
     Active Substance: AMPHOTERICIN B
     Dosage: UNK
  3. TIGECYCLINE. [Concomitant]
     Active Substance: TIGECYCLINE
     Dosage: UNK
  4. CEFAMANDOLE [Concomitant]
     Active Substance: CEFAMANDOLE
     Dosage: UNK
  5. VORICONAZOLE. [Suspect]
     Active Substance: VORICONAZOLE
     Dosage: ADMINISTERED FOR A TOTAL OF 9 DAYS
  6. LANSOPRAZOLE. [Suspect]
     Active Substance: LANSOPRAZOLE
     Dosage: UNK
  7. MEROPENEM. [Concomitant]
     Active Substance: MEROPENEM
     Dosage: UNK
  8. DORIPENEM [Concomitant]
     Active Substance: DORIPENEM
     Dosage: UNK
  9. POSACONAZOLE [Interacting]
     Active Substance: POSACONAZOLE
     Dosage: UNK
     Route: 048
  10. LINEZOLID. [Concomitant]
     Active Substance: LINEZOLID
     Dosage: UNK
  11. COLISTIN [Concomitant]
     Active Substance: COLISTIN
     Dosage: UNK
  12. AMIKACIN [Concomitant]
     Active Substance: AMIKACIN
     Dosage: UNK
  13. IMMUNE GLOBULIN [Concomitant]
     Active Substance: HUMAN IMMUNOGLOBULIN G
     Dosage: UNK (EVERY 5 DAYS)
     Route: 042

REACTIONS (6)
  - Ventricular fibrillation [Unknown]
  - Bradycardia [Unknown]
  - Cardiac arrest [Unknown]
  - Drug interaction [Unknown]
  - Torsade de pointes [Unknown]
  - Long QT syndrome [Unknown]
